FAERS Safety Report 9057100 (Version 1)
Quarter: 2013Q1

REPORT INFORMATION
  Report Type: Spontaneous
  Country: US (occurrence: US)
  Receive Date: 20130131
  Receipt Date: 20130131
  Transmission Date: 20140127
  Serious: No
  Sender: FDA-Public Use
  Company Number: US-ABBOTT-12P-163-0997752-00

PATIENT
  Sex: Male

DRUGS (1)
  1. HUMIRA [Suspect]
     Indication: CROHN^S DISEASE
     Dates: start: 20121005, end: 20121005

REACTIONS (6)
  - Gait disturbance [Unknown]
  - Weight bearing difficulty [Unknown]
  - Pain in extremity [Unknown]
  - Pain in extremity [Unknown]
  - Pain in extremity [Unknown]
  - Joint swelling [Unknown]
